FAERS Safety Report 5239715-4 (Version None)
Quarter: 2007Q1

REPORT INFORMATION
  Report Type: 
  Country: None (occurrence: None)
  Receive Date: 20070213
  Receipt Date: 20070213
  Transmission Date: 20070707
  Serious: No
  Sender: FDA-Public Use
  Company Number: None

PATIENT
  Age: 51 Year
  Sex: Female
  Weight: 63.5036 kg

DRUGS (1)
  1. ZICAM  MATRIXX [Suspect]
     Indication: NASOPHARYNGITIS
     Dosage: 1 TWICE A DAY NASAL
     Route: 045
     Dates: start: 20070208, end: 20070208

REACTIONS (1)
  - ANOSMIA [None]
